FAERS Safety Report 10488368 (Version 1)
Quarter: 2014Q4

REPORT INFORMATION
  Report Type: Report from Study
  Country: HU (occurrence: HU)
  Receive Date: 20141002
  Receipt Date: 20141002
  Transmission Date: 20150528
  Serious: Yes (Hospitalization)
  Sender: FDA-Public Use
  Company Number: PHHY2014HU125943

PATIENT
  Age: 63 Year
  Sex: Female

DRUGS (2)
  1. SANDIMMUN NEORAL [Suspect]
     Active Substance: CYCLOSPORINE
     Indication: URTICARIA CHRONIC
     Dosage: 100 MG, BID
     Route: 048
     Dates: start: 20130201, end: 20140101
  2. SANDIMMUN NEORAL [Suspect]
     Active Substance: CYCLOSPORINE
     Dosage: UNK
     Route: 048

REACTIONS (3)
  - Labile blood pressure [Unknown]
  - Myocardial infarction [Recovered/Resolved]
  - Renal function test abnormal [Unknown]

NARRATIVE: CASE EVENT DATE: 20130401
